FAERS Safety Report 6600676-4 (Version None)
Quarter: 2010Q1

REPORT INFORMATION
  Report Type: 
  Country: None (occurrence: None)
  Receive Date: 20100223
  Receipt Date: 20100223
  Transmission Date: 20100710
  Serious: Yes (Death)
  Sender: FDA-Public Use
  Company Number: None

PATIENT
  Age: 58 Year
  Sex: Male
  Weight: 104.3273 kg

DRUGS (1)
  1. LUNESTA [Suspect]
     Indication: INSOMNIA
     Dosage: 1 PER DAY AT BEDTIME PO  4 NIGHTS
     Route: 048
     Dates: start: 20100113, end: 20100116

REACTIONS (5)
  - COMA [None]
  - GUN SHOT WOUND [None]
  - OBSESSIVE-COMPULSIVE DISORDER [None]
  - SNORING [None]
  - SOMNAMBULISM [None]
